FAERS Safety Report 20738420 (Version 1)
Quarter: 2022Q2

REPORT INFORMATION
  Report Type: Report from Study
  Country: IT (occurrence: IT)
  Receive Date: 20220422
  Receipt Date: 20220422
  Transmission Date: 20220721
  Serious: Yes (Hospitalization)
  Sender: FDA-Public Use
  Company Number: None

PATIENT
  Age: 70 Year
  Sex: Male

DRUGS (8)
  1. AZITHROMYCIN [Suspect]
     Active Substance: AZITHROMYCIN
     Indication: Bacterial infection
     Dosage: UNIT DOSE 500MG,FREQUENCY TIME 1 DAYS,DURATION 3 DAYS
     Route: 048
     Dates: start: 20220320, end: 20220323
  2. METFORMIN [Concomitant]
     Active Substance: METFORMIN HYDROCHLORIDE
     Dosage: UNIT DOAE 1500MG
     Route: 048
  3. BISOPROLOL FUMARATE [Concomitant]
     Active Substance: BISOPROLOL FUMARATE
     Dosage: UNIT DOSE 2.5MG
     Route: 048
  4. TICAGRELOR [Concomitant]
     Active Substance: TICAGRELOR
     Dosage: UNIT DOSE 180MG,BRILIQUE 90 MG FILM-COATED TABLETS
     Route: 048
  5. MICARDIS [Concomitant]
     Active Substance: TELMISARTAN
     Dosage: MICARDIS 40 MG TABLETS
     Route: 048
  6. ASPIRIN [Concomitant]
     Active Substance: ASPIRIN
     Dosage: UNIT DOSE 100MG
     Route: 048
  7. PANTOPRAZOLE [Concomitant]
     Active Substance: PANTOPRAZOLE
     Route: 048
  8. LUVION [Concomitant]
     Dosage: LUVION 50 MG TABLETS, UNIT DOSE 50MG
     Route: 048

REACTIONS (3)
  - Pruritus allergic [Recovering/Resolving]
  - Drug hypersensitivity [Recovering/Resolving]
  - Dysphagia [Recovering/Resolving]

NARRATIVE: CASE EVENT DATE: 20220323
